FAERS Safety Report 6740818-3 (Version None)
Quarter: 2010Q2

REPORT INFORMATION
  Report Type: 
  Country: None (occurrence: None)
  Receive Date: 20100525
  Receipt Date: 20100525
  Transmission Date: 20101027
  Serious: No
  Sender: FDA-Public Use
  Company Number: None

PATIENT
  Age: 74 Year
  Sex: Female

DRUGS (1)
  1. DORZOLAMIDE HYDROCHLORIDE AND TIMOLOL MALEATE [Suspect]
     Dosage: ONE DROP TO BOTH EYES TWICE DAILY OPHTHALMIC
     Route: 047
     Dates: start: 20100501, end: 20100524

REACTIONS (1)
  - EYE SWELLING [None]
